FAERS Safety Report 4808361-6 (Version None)
Quarter: 2005Q4

REPORT INFORMATION
  Report Type: 
  Country: None (occurrence: None)
  Receive Date: 20051020
  Receipt Date: 20051020
  Transmission Date: 20060501
  Serious: Yes (Hospitalization)
  Sender: FDA-Public Use
  Company Number: None

PATIENT
  Age: 81 Year
  Sex: Male

DRUGS (7)
  1. LISINOPRIL [Suspect]
     Indication: HYPERTENSION
     Dosage: 40MG QD  'CHRONIC'
  2. TERAZOSIN HCL [Concomitant]
  3. HYDRALAZINE [Concomitant]
  4. HYDROCHLOROTHIAZIDE [Concomitant]
  5. RANITIDINE [Concomitant]
  6. FINASTERIDE [Concomitant]
  7. DITROPAN [Concomitant]

REACTIONS (1)
  - ANGIONEUROTIC OEDEMA [None]
